FAERS Safety Report 8809384 (Version 1)
Quarter: 2012Q4

REPORT INFORMATION
  Report Type: 
  Country: US (occurrence: US)
  Receive Date: 20120926
  Receipt Date: 20120926
  Transmission Date: 20130627
  Serious: No
  Sender: FDA-Public Use
  Company Number: US-ASTRAZENECA-2012SE65177

PATIENT
  Age: 57 Year
  Sex: Male

DRUGS (2)
  1. SEROQUEL [Suspect]
     Indication: SLEEP DISORDER
     Route: 048
  2. ZOLOFT [Suspect]
     Route: 048

REACTIONS (5)
  - Depression [Unknown]
  - Feeling abnormal [Unknown]
  - Decreased activity [Unknown]
  - Enzyme level increased [Unknown]
  - Off label use [Unknown]
